FAERS Safety Report 8518674-2 (Version None)
Quarter: 2012Q3

REPORT INFORMATION
  Report Type: 
  Country: None (occurrence: None)
  Receive Date: 20120718
  Receipt Date: 20110705
  Transmission Date: 20120928
  Serious: No
  Sender: FDA-Public Use
  Company Number: US-BRISTOL-MYERS SQUIBB COMPANY-15802671

PATIENT
  Age: 78 Year
  Sex: Male

DRUGS (2)
  1. TAXOTERE [Suspect]
     Dosage: 130MG:06APR;130MG: UNK2011 TO UNK2011
     Route: 041
     Dates: start: 20110406
  2. COUMADIN [Suspect]
     Dosage: 6DAYS A WEEK

REACTIONS (1)
  - INTERNATIONAL NORMALISED RATIO INCREASED [None]
